FAERS Safety Report 24857491 (Version 1)
Quarter: 2025Q1

REPORT INFORMATION
  Report Type: Spontaneous
  Country: US (occurrence: None)
  Receive Date: 20250117
  Receipt Date: 20250117
  Transmission Date: 20250408
  Serious: Yes (Hospitalization)
  Sender: FDA-CTU
  Company Number: None

PATIENT
  Age: 55 Year
  Sex: Female
  Weight: 67 kg

DRUGS (1)
  1. HUMIRA [Suspect]
     Active Substance: ADALIMUMAB
     Indication: Rheumatoid arthritis
     Dosage: 40MG EVERY 2 WEEKS SUBCUTANEOUS?
     Route: 058
     Dates: start: 20241118, end: 20250102

REACTIONS (1)
  - Infectious mononucleosis [None]

NARRATIVE: CASE EVENT DATE: 20250102
